FAERS Safety Report 25461683 (Version 1)
Quarter: 2025Q2

REPORT INFORMATION
  Report Type: Spontaneous
  Country: US (occurrence: None)
  Receive Date: 20250616
  Receipt Date: 20250616
  Transmission Date: 20250716
  Serious: Yes (Hospitalization)
  Sender: FDA-CTU
  Company Number: None

PATIENT
  Age: 71 Year
  Sex: Female
  Weight: 55.35 kg

DRUGS (9)
  1. ARGININE [Suspect]
     Active Substance: ARGININE
     Indication: Metastases to central nervous system
     Dosage: 10 G GRAM(S) DALY ORAL
     Route: 048
     Dates: start: 20250528, end: 20250610
  2. MEMANTINE [Concomitant]
     Active Substance: MEMANTINE
     Dates: start: 20250515
  3. DEXAMETHASONE [Concomitant]
     Active Substance: DEXAMETHASONE
     Dates: start: 20250508, end: 20250610
  4. TRAMADOL [Concomitant]
     Active Substance: TRAMADOL
     Dates: start: 20250503
  5. TYLENOL [Concomitant]
     Active Substance: ACETAMINOPHEN
     Dates: start: 20250301
  6. CETIRIZINE HCL [Concomitant]
     Active Substance: CETIRIZINE HYDROCHLORIDE
     Dates: start: 20200514
  7. ERGOCALCIFEROL [Concomitant]
     Active Substance: ERGOCALCIFEROL
     Dates: start: 20250315
  8. MELOXICAM [Concomitant]
     Active Substance: MELOXICAM
     Dates: start: 20250107, end: 20250430
  9. ONDANSETRON [Concomitant]
     Active Substance: ONDANSETRON
     Dates: start: 20250528, end: 20250610

REACTIONS (7)
  - Hyperglycaemia [None]
  - Oxygen saturation decreased [None]
  - Type 2 diabetes mellitus [None]
  - Glycosylated haemoglobin increased [None]
  - Fatigue [None]
  - Fall [None]
  - Back injury [None]

NARRATIVE: CASE EVENT DATE: 20250613
